FAERS Safety Report 6845256-0 (Version None)
Quarter: 2010Q3

REPORT INFORMATION
  Report Type: 
  Country: None (occurrence: None)
  Receive Date: 20100715
  Receipt Date: 20070817
  Transmission Date: 20110219
  Serious: No
  Sender: FDA-Public Use
  Company Number: US-PFIZER INC-2007069805

PATIENT
  Sex: Male
  Weight: 80.5 kg

DRUGS (1)
  1. CHANTIX [Suspect]
     Dates: start: 20070816

REACTIONS (3)
  - DYSPEPSIA [None]
  - ERUCTATION [None]
  - HUNGER [None]
